FAERS Safety Report 18087204 (Version 4)
Quarter: 2021Q2

REPORT INFORMATION
  Report Type: Other
  Country: DE (occurrence: DE)
  Receive Date: 20200729
  Receipt Date: 20210522
  Transmission Date: 20210717
  Serious: No
  Sender: FDA-Public Use
  Company Number: DE-ROCHE-2459047

PATIENT
  Sex: Female

DRUGS (12)
  1. CORTISONE [Suspect]
     Active Substance: CORTISONE
     Indication: PREMEDICATION
     Route: 065
  2. ASPIRIN. [Concomitant]
     Active Substance: ASPIRIN
  3. DEKRISTOL [Concomitant]
     Active Substance: CHOLECALCIFEROL
  4. CORTISONE [Suspect]
     Active Substance: CORTISONE
     Route: 065
     Dates: start: 20200406
  5. OCREVUS [Suspect]
     Active Substance: OCRELIZUMAB
     Indication: RELAPSING-REMITTING MULTIPLE SCLEROSIS
     Route: 042
     Dates: start: 20191014
  6. PREGABALIN. [Concomitant]
     Active Substance: PREGABALIN
  7. OCREVUS [Suspect]
     Active Substance: OCRELIZUMAB
     Route: 042
     Dates: start: 20191028
  8. OCREVUS [Suspect]
     Active Substance: OCRELIZUMAB
     Route: 042
     Dates: start: 20200406
  9. BETMIGA [Concomitant]
     Active Substance: MIRABEGRON
  10. MICROGYNON [Concomitant]
     Active Substance: ETHINYL ESTRADIOL\LEVONORGESTREL ACETATE
     Indication: CONTRACEPTION
  11. FLU VACCINE [Concomitant]
     Active Substance: INFLUENZA VIRUS VACCINE
     Dates: start: 20201207
  12. FINGOLIMOD. [Concomitant]
     Active Substance: FINGOLIMOD
     Indication: PRODUCT USED FOR UNKNOWN INDICATION
     Route: 065

REACTIONS (22)
  - Gingivitis [Recovered/Resolved]
  - Nail bed inflammation [Recovered/Resolved]
  - Infection susceptibility increased [Not Recovered/Not Resolved]
  - Nerve injury [Not Recovered/Not Resolved]
  - Upper respiratory tract infection [Recovered/Resolved]
  - Angular cheilitis [Recovering/Resolving]
  - Spinal pain [Not Recovered/Not Resolved]
  - Neuralgia [Not Recovered/Not Resolved]
  - Headache [Recovered/Resolved]
  - Fatigue [Not Recovered/Not Resolved]
  - Depression [Recovered/Resolved]
  - Urinary tract infection [Recovered/Resolved]
  - Aphthous ulcer [Recovering/Resolving]
  - Pruritus [Recovering/Resolving]
  - Reaction to preservatives [Recovering/Resolving]
  - Nasopharyngitis [Recovered/Resolved]
  - Body temperature increased [Recovered/Resolved]
  - Depressed mood [Recovered/Resolved]
  - Skin exfoliation [Recovering/Resolving]
  - Paresis [Not Recovered/Not Resolved]
  - Gingival bleeding [Not Recovered/Not Resolved]
  - Pustule [Recovering/Resolving]

NARRATIVE: CASE EVENT DATE: 20191014
